FAERS Safety Report 13688026 (Version 1)
Quarter: 2017Q2

REPORT INFORMATION
  Report Type: Spontaneous
  Country: US (occurrence: US)
  Receive Date: 20170626
  Receipt Date: 20170626
  Transmission Date: 20170830
  Serious: No
  Sender: FDA-Public Use
  Company Number: US-ACCORD-041064

PATIENT
  Sex: Female
  Weight: 142 kg

DRUGS (1)
  1. CLONAZEPAM ACCORD [Suspect]
     Active Substance: CLONAZEPAM
     Indication: INSOMNIA
     Dosage: FREQUENCY : QHS (EVERY BAD TIME)??DOSE/STRENGTH: 1 MG??RECEIVED APPROXIMATELY 02 MONTHS AGO.
     Route: 048

REACTIONS (1)
  - Somnolence [Unknown]
